FAERS Safety Report 17823816 (Version 1)
Quarter: 2020Q2

REPORT INFORMATION
  Report Type: Spontaneous
  Country: US (occurrence: US)
  Receive Date: 20200526
  Receipt Date: 20200526
  Transmission Date: 20200714
  Serious: No
  Sender: FDA-Public Use
  Company Number: US-PFIZER INC-2020205374

PATIENT
  Age: 67 Year
  Sex: Female

DRUGS (1)
  1. SUTENT [Suspect]
     Active Substance: SUNITINIB MALATE
     Indication: RENAL CANCER
     Dosage: 37.5 MG, ONCE DAILY FOR 2 WEEKS FOLLOWED BY 1 WEEK REST
     Route: 048
     Dates: start: 202001, end: 2020

REACTIONS (4)
  - Feeding disorder [Unknown]
  - Asthenia [Unknown]
  - Fatigue [Unknown]
  - Throat tightness [Unknown]

NARRATIVE: CASE EVENT DATE: 2020
